FAERS Safety Report 10182237 (Version 4)
Quarter: 2014Q2

REPORT INFORMATION
  Report Type: Report from Study
  Country: US (occurrence: US)
  Receive Date: 20140520
  Receipt Date: 20140627
  Transmission Date: 20141212
  Serious: Yes (Hospitalization)
  Sender: FDA-Public Use
  Company Number: US-BIOGENIDEC-2014BI044081

PATIENT
  Age: 61 Year
  Sex: Female

DRUGS (27)
  1. TECFIDERA [Suspect]
     Indication: MULTIPLE SCLEROSIS
     Route: 048
     Dates: start: 20130808, end: 20130814
  2. TECFIDERA [Suspect]
     Indication: MULTIPLE SCLEROSIS
     Route: 048
     Dates: start: 20130815, end: 20140522
  3. DULCOLAX [Concomitant]
     Route: 048
  4. NYSTATIN POWDER [Concomitant]
  5. NYSTATIN/TRIAMCINOLONE [Concomitant]
  6. VITAMIN A AND D [Concomitant]
  7. ADVIL [Concomitant]
  8. ATENOLOL [Concomitant]
     Route: 048
  9. BACLOFEN [Concomitant]
     Route: 048
  10. CALCIUM AND MAGNESIUM [Concomitant]
     Route: 048
  11. EVENING PRIMROSE OIL [Concomitant]
     Route: 048
  12. FERROUS SULFATE [Concomitant]
     Route: 048
  13. FLAXSEED OIL [Concomitant]
  14. GABAPENTIN [Concomitant]
     Route: 048
  15. GLUCOSAMINE WITH CHONDROITIN [Concomitant]
     Route: 048
  16. HORSE CHESTNUT [Concomitant]
     Route: 048
  17. HYDROCODONE WITH TYLENOL [Concomitant]
     Route: 048
  18. LASIX [Concomitant]
     Route: 048
  19. SYNTHROID [Concomitant]
     Route: 048
  20. LUTEIN [Concomitant]
     Route: 048
  21. MAGNESIUM OXIDE [Concomitant]
     Route: 048
  22. PANTOTHENIC ACID [Concomitant]
     Route: 048
  23. PRAVASTATIN [Concomitant]
     Route: 048
  24. TAGAMET HB [Concomitant]
     Route: 048
  25. VITAMIN B COMPLEX [Concomitant]
     Route: 048
  26. VITAMIN C [Concomitant]
     Route: 048
  27. VITAMIN D3 [Concomitant]
     Route: 048

REACTIONS (17)
  - Abdominal wall abscess [Unknown]
  - Skin necrosis [Unknown]
  - Sepsis [Unknown]
  - Hypotension [Recovered/Resolved]
  - Paraparesis [Unknown]
  - Nausea [Recovered/Resolved]
  - Cellulitis [Recovered/Resolved]
  - Pruritus [Unknown]
  - Hypocalcaemia [Unknown]
  - Hypoaesthesia oral [Unknown]
  - Hyponatraemia [Unknown]
  - Dermatitis [Unknown]
  - Vomiting [Recovered/Resolved]
  - Anaemia [Unknown]
  - Diarrhoea [Unknown]
  - Hallucination [Recovered/Resolved]
  - Peripheral swelling [Recovered/Resolved]
